FAERS Safety Report 9896075 (Version 2)
Quarter: 2014Q1

REPORT INFORMATION
  Report Type: Spontaneous
  Country: US (occurrence: US)
  Receive Date: 20140213
  Receipt Date: 20140213
  Transmission Date: 20141002
  Serious: No
  Sender: FDA-Public Use
  Company Number: US-BRISTOL-MYERS SQUIBB COMPANY-19040641

PATIENT
  Age: 30 Year
  Sex: Female

DRUGS (5)
  1. ORENCIA FOR INJ 250 MG/VIAL [Suspect]
     Indication: RHEUMATOID ARTHRITIS
     Dosage: INTRAVENOUS INFUSION
     Dates: start: 201108
  2. ENBREL [Concomitant]
     Indication: RHEUMATOID ARTHRITIS
     Route: 058
  3. PLAQUENIL [Concomitant]
  4. NAPROXEN [Concomitant]
  5. PREDNISONE [Concomitant]
     Indication: RHEUMATOID ARTHRITIS

REACTIONS (2)
  - Mouth ulceration [Unknown]
  - Treatment failure [Unknown]
